FAERS Safety Report 21710060 (Version 1)
Quarter: 2022Q4

REPORT INFORMATION
  Report Type: Spontaneous
  Country: CN (occurrence: CN)
  Receive Date: 20221211
  Receipt Date: 20221211
  Transmission Date: 20230112
  Serious: Yes (Hospitalization)
  Sender: FDA-Public Use
  Company Number: CN-JNJFOC-20221209130

PATIENT
  Age: 61 Year
  Sex: Male
  Weight: 60 kg

DRUGS (6)
  1. DARZALEX [Suspect]
     Active Substance: DARATUMUMAB
     Indication: Plasma cell myeloma refractory
     Dosage: D2-3, D8-9??DOSES-1?DAYS-1
     Route: 041
     Dates: start: 20221115, end: 20221116
  2. DARZALEX [Suspect]
     Active Substance: DARATUMUMAB
     Dosage: D2-3, D8-9??DOSES-1?DAYS-1
     Route: 041
     Dates: start: 20221121, end: 20221122
  3. BORTEZOMIB [Suspect]
     Active Substance: BORTEZOMIB
     Indication: Plasma cell myeloma refractory
     Dosage: D1, 4, 8, 11 ?DOSES-1?DAYS-3
     Route: 058
     Dates: start: 20221114
  4. POMALIDOMIDE [Suspect]
     Active Substance: POMALIDOMIDE
     Indication: Plasma cell myeloma refractory
     Dosage: D1-21?DOSES-1?DAYS-1
     Route: 048
     Dates: start: 20221110
  5. DEXAMETHASONE SODIUM PHOSPHATE [Suspect]
     Active Substance: DEXAMETHASONE SODIUM PHOSPHATE
     Indication: Plasma cell myeloma refractory
     Dosage: D1-4, D8-11?DOSES-1?DAYS-1
     Route: 041
     Dates: start: 20221110, end: 20221117
  6. DEXAMETHASONE SODIUM PHOSPHATE [Suspect]
     Active Substance: DEXAMETHASONE SODIUM PHOSPHATE
     Dosage: DOSES-1?DAYS-1
     Route: 041
     Dates: start: 20221121, end: 20221124

REACTIONS (2)
  - Myelosuppression [Recovering/Resolving]
  - Intentional product use issue [Unknown]

NARRATIVE: CASE EVENT DATE: 20221114
